FAERS Safety Report 22166342 (Version 1)
Quarter: 2023Q1

REPORT INFORMATION
  Report Type: Spontaneous
  Country: US (occurrence: None)
  Receive Date: 20230331
  Receipt Date: 20230331
  Transmission Date: 20230418
  Serious: Yes (Hospitalization)
  Sender: FDA-Public Use
  Company Number: None

PATIENT
  Age: 69 Year
  Sex: Male
  Weight: 62.64 kg

DRUGS (3)
  1. VALPROIC ACID [Suspect]
     Active Substance: VALPROIC ACID
     Indication: Aggression
     Dosage: FREQUENCY : TWICE A DAY;?
     Route: 048
     Dates: start: 20230213, end: 20230303
  2. VALPROIC ACID [Suspect]
     Active Substance: VALPROIC ACID
     Indication: Aggression
     Dosage: FREQUENCY : TWICE A DAY;?
     Route: 048
     Dates: start: 20230213, end: 20230303
  3. VALPROIC ACID [Suspect]
     Active Substance: VALPROIC ACID
     Indication: Impulsive behaviour

REACTIONS (1)
  - Somnolence [None]

NARRATIVE: CASE EVENT DATE: 20230302
